FAERS Safety Report 7066612-4 (Version None)
Quarter: 2010Q4

REPORT INFORMATION
  Report Type: 
  Country: None (occurrence: None)
  Receive Date: 20101027
  Receipt Date: 20100719
  Transmission Date: 20110411
  Serious: No
  Sender: FDA-Public Use
  Company Number: US-WYE-H16689010

PATIENT
  Sex: Female

DRUGS (1)
  1. PREMPRO [Suspect]
     Dosage: 0.625/2.5 MG TABLET ONCE DAILY
     Dates: end: 20100701

REACTIONS (2)
  - AFFECT LABILITY [None]
  - VULVOVAGINAL DRYNESS [None]
